FAERS Safety Report 9648754 (Version 5)
Quarter: 2014Q1

REPORT INFORMATION
  Report Type: Report from Study
  Country: CA (occurrence: CA)
  Receive Date: 20131028
  Receipt Date: 20140106
  Transmission Date: 20141002
  Serious: Yes (Hospitalization, Other)
  Sender: FDA-Public Use
  Company Number: CA-ABBVIE-13P-028-1130742-00

PATIENT
  Age: 27 Year
  Sex: Female
  Weight: 59.02 kg

DRUGS (2)
  1. HUMIRA [Suspect]
     Indication: CROHN^S DISEASE
     Dosage: LOADING DOSE
     Route: 058
     Dates: start: 20130724, end: 20130724
  2. HUMIRA [Suspect]
     Dosage: RE-INDUCTION DOSE
     Route: 058
     Dates: start: 201311, end: 201311

REACTIONS (8)
  - Pyrexia [Recovered/Resolved]
  - Gastrointestinal infection [Recovered/Resolved]
  - Vomiting [Not Recovered/Not Resolved]
  - Cellulitis [Unknown]
  - Crohn^s disease [Unknown]
  - Hypersensitivity [Unknown]
  - Joint swelling [Unknown]
  - Investigation [Unknown]
